FAERS Safety Report 15304908 (Version 1)
Quarter: 2018Q3

REPORT INFORMATION
  Report Type: Spontaneous
  Country: US (occurrence: US)
  Receive Date: 20180809
  Receipt Date: 20180809
  Transmission Date: 20181010
  Serious: Yes (Hospitalization)
  Sender: FDA-Public Use
  Company Number: None

PATIENT
  Age: 33 Year
  Sex: Female
  Weight: 81.9 kg

DRUGS (10)
  1. PROMETHAZINE HCI 25MG PRN PO [Concomitant]
  2. MAPAP  2 EA PO PREMEDICATION (PRIOR OCREVUS) [Concomitant]
  3. OCREVUS [Suspect]
     Active Substance: OCRELIZUMAB
     Indication: MULTIPLE SCLEROSIS
     Dosage: ?          OTHER FREQUENCY:EVERY 15? 20 DAYS;?
     Route: 042
  4. MORPHINE SULFATE 15 MG DAILY PO [Concomitant]
  5. SOLUMEDROL 100MG IV PREMEDICATION (PRIOR OCREVUS) [Concomitant]
  6. DIPHENHYDRAMINE 25 MG HCL PREMEDICATION ( PRIOR OCREVUS) [Concomitant]
  7. MORPHNINE SULFATE 60MG BID PO [Concomitant]
  8. BACLOFEN 10MG BID PO [Concomitant]
  9. HYDROMORPHONE 4 MG PRN PO [Concomitant]
  10. LYRICA 200MG TID PO [Concomitant]

REACTIONS (8)
  - Diarrhoea [None]
  - Chills [None]
  - Nausea [None]
  - Rash [None]
  - Pyrexia [None]
  - Throat irritation [None]
  - Vomiting [None]
  - Dehydration [None]

NARRATIVE: CASE EVENT DATE: 20120808
